FAERS Safety Report 19297629 (Version 1)
Quarter: 2021Q2

REPORT INFORMATION
  Report Type: Spontaneous
  Country: US (occurrence: US)
  Receive Date: 20210524
  Receipt Date: 20210524
  Transmission Date: 20210717
  Serious: No
  Sender: FDA-Public Use
  Company Number: US-ASTRAZENECA-2021A427267

PATIENT
  Sex: Female

DRUGS (1)
  1. PULMICORT FLEXHALER [Suspect]
     Active Substance: BUDESONIDE
     Dosage: 90.0UG/INHAL UNKNOWN
     Route: 055

REACTIONS (4)
  - Device defective [Unknown]
  - Headache [Unknown]
  - Nausea [Unknown]
  - Wheezing [Unknown]
